FAERS Safety Report 25551118 (Version 3)
Quarter: 2025Q3

REPORT INFORMATION
  Report Type: Spontaneous
  Country: US (occurrence: US)
  Receive Date: 20250714
  Receipt Date: 20250730
  Transmission Date: 20251020
  Serious: Yes (Other)
  Sender: NOVARTIS
  Company Number: US-HALEON-2252014

PATIENT
  Age: 39 Year
  Sex: Female

DRUGS (1)
  1. TERBINAFINE [Suspect]
     Active Substance: TERBINAFINE
     Indication: Body tinea
     Route: 065

REACTIONS (10)
  - Thrombotic thrombocytopenic purpura [Recovered/Resolved]
  - Syncope [Recovered/Resolved]
  - Cerebral haemorrhage [Recovered/Resolved]
  - Thrombocytopenia [Recovered/Resolved]
  - Haemolytic anaemia [Recovered/Resolved]
  - Petechiae [Recovered/Resolved]
  - Pallor [Recovered/Resolved]
  - Nausea [Recovered/Resolved]
  - Vomiting [Recovered/Resolved]
  - Purpura [Recovered/Resolved]
